FAERS Safety Report 4493256-0 (Version None)
Quarter: 2004Q4

REPORT INFORMATION
  Report Type: 
  Country: None (occurrence: None)
  Receive Date: 20041028
  Receipt Date: 20041015
  Transmission Date: 20050328
  Serious: Yes (Other)
  Sender: FDA-Public Use
  Company Number: 2004079397

PATIENT
  Sex: Female

DRUGS (1)
  1. ROGAINE [Suspect]
     Indication: ALOPECIA
     Dosage: 1 ML 2 TIMES, TOPICAL
     Route: 061
     Dates: start: 19990101

REACTIONS (3)
  - AURICULAR SWELLING [None]
  - ERYTHEMA [None]
  - SWELLING FACE [None]
